FAERS Safety Report 7223055-8 (Version None)
Quarter: 2011Q1

REPORT INFORMATION
  Report Type: 
  Country: None (occurrence: None)
  Receive Date: 20110112
  Receipt Date: 20110106
  Transmission Date: 20110831
  Serious: Yes (Hospitalization)
  Sender: FDA-Public Use
  Company Number: US-MERCK-1010USA02212

PATIENT
  Age: 59 Year
  Sex: Female

DRUGS (6)
  1. FLUVASTATIN SODIUM [Suspect]
     Route: 065
  2. CIMETIDINE [Suspect]
     Route: 065
  3. PRINIVIL [Suspect]
     Route: 048
  4. FENOFIBRATE [Suspect]
     Route: 065
  5. ATENOLOL [Suspect]
     Route: 065
  6. METFORMIN [Suspect]
     Route: 065

REACTIONS (4)
  - DRUG INTERACTION [None]
  - RENAL FAILURE ACUTE [None]
  - LACTIC ACIDOSIS [None]
  - PANCREATITIS ACUTE [None]
